FAERS Safety Report 4345831-1 (Version None)
Quarter: 2004Q2

REPORT INFORMATION
  Report Type: 
  Country: None (occurrence: None)
  Receive Date: 20040423
  Receipt Date: 20040423
  Transmission Date: 20050107
  Serious: Yes (Hospitalization)
  Sender: FDA-Public Use
  Company Number: None

PATIENT
  Age: 73 Year
  Sex: Female
  Weight: 72.1219 kg

DRUGS (13)
  1. PACLITAXEL [Suspect]
     Indication: OVARIAN CANCER
     Dosage: 175 MG/M2 IV - 3 HOURS
     Route: 042
     Dates: start: 20040219
  2. PACLITAXEL [Suspect]
     Indication: OVARIAN CANCER
     Dosage: 175 MG/M2 IV - 3 HOURS
     Route: 042
     Dates: start: 20040311
  3. PACLITAXEL [Suspect]
     Indication: OVARIAN CANCER
     Dosage: 175 MG/M2 IV - 3 HOURS
     Route: 042
     Dates: start: 20040401
  4. CARBOPLATIN [Suspect]
     Dosage: AUC=5 IV - 30 MINS
     Route: 042
     Dates: start: 20040219
  5. CARBOPLATIN [Suspect]
     Dosage: AUC=5 IV - 30 MINS
     Route: 042
     Dates: start: 20040311
  6. CARBOPLATIN [Suspect]
     Dosage: AUC=5 IV - 30 MINS
     Route: 042
     Dates: start: 20040401
  7. GEMCITABINE (ELI LILLY) [Suspect]
     Indication: OVARIAN CANCER
     Dosage: 800 MG/M2 IV - 30 MIN
     Route: 042
     Dates: start: 20040219
  8. GEMCITABINE (ELI LILLY) [Suspect]
     Indication: OVARIAN CANCER
     Dosage: 800 MG/M2 IV - 30 MIN
     Route: 042
     Dates: start: 20040226
  9. GEMCITABINE (ELI LILLY) [Suspect]
     Indication: OVARIAN CANCER
     Dosage: 800 MG/M2 IV - 30 MIN
     Route: 042
     Dates: start: 20040311
  10. GEMCITABINE (ELI LILLY) [Suspect]
     Indication: OVARIAN CANCER
     Dosage: 800 MG/M2 IV - 30 MIN
     Route: 042
     Dates: start: 20040318
  11. GEMCITABINE (ELI LILLY) [Suspect]
     Indication: OVARIAN CANCER
     Dosage: 800 MG/M2 IV - 30 MIN
     Route: 042
     Dates: start: 20040410
  12. PRINIVIL [Concomitant]
  13. DOCUSATE SODIUM [Concomitant]

REACTIONS (4)
  - CHILLS [None]
  - PANCREATITIS [None]
  - PNEUMONIA [None]
  - TREMOR [None]
